FAERS Safety Report 23623160 (Version 2)
Quarter: 2024Q1

REPORT INFORMATION
  Report Type: Spontaneous
  Country: DE (occurrence: DE)
  Receive Date: 20240312
  Receipt Date: 20240322
  Transmission Date: 20240409
  Serious: Yes (Death)
  Sender: FDA-Public Use
  Company Number: DE-SAMSUNG BIOEPIS-SB-2024-06967

PATIENT
  Age: 60 Year
  Sex: Male
  Weight: 64 kg

DRUGS (12)
  1. ONTRUZANT [Suspect]
     Active Substance: TRASTUZUMAB-DTTB
     Indication: Oesophageal adenocarcinoma
     Dosage: D1 8MG/KG, 6MG/KG D22/D43
     Route: 042
     Dates: start: 20230425
  2. ONTRUZANT [Suspect]
     Active Substance: TRASTUZUMAB-DTTB
     Dosage: 404MG; D1 8MG/KG, 6MG/KG D22/D43;
     Route: 042
     Dates: start: 20230607
  3. PEMBROLIZUMAB [Suspect]
     Active Substance: PEMBROLIZUMAB
     Indication: Oesophageal adenocarcinoma
     Route: 042
     Dates: start: 20230425
  4. PEMBROLIZUMAB [Suspect]
     Active Substance: PEMBROLIZUMAB
     Route: 042
     Dates: start: 20230607
  5. OXALIPLATIN [Suspect]
     Active Substance: OXALIPLATIN
     Indication: Oesophageal adenocarcinoma
     Dosage: 85 MG/M D1/D15/D29/D43 PRE AND POST OP
     Route: 042
     Dates: start: 20230425
  6. OXALIPLATIN [Suspect]
     Active Substance: OXALIPLATIN
     Dosage: 85 MG/M; D1/D15/D29/D43 PRE AND POST OP
     Route: 042
     Dates: start: 20230607
  7. LEUCOVORIN [Suspect]
     Active Substance: LEUCOVORIN\LEUCOVORIN CALCIUM
     Indication: Oesophageal adenocarcinoma
     Dosage: 200 MG/M SQUARE; 346MG; D1/D15/D29/D43
     Route: 042
     Dates: start: 20230425
  8. LEUCOVORIN [Suspect]
     Active Substance: LEUCOVORIN\LEUCOVORIN CALCIUM
     Dosage: 346MG; D1/D15/D29/D43
     Route: 042
     Dates: start: 20230607
  9. FLUOROURACIL [Suspect]
     Active Substance: FLUOROURACIL
     Indication: Oesophageal adenocarcinoma
     Dosage: 2600 MG/M SQUARE; D1/D15/D29 AND D43 PRE AND POST OP
     Route: 042
     Dates: start: 20230425
  10. FLUOROURACIL [Suspect]
     Active Substance: FLUOROURACIL
     Dosage: 2600 MG/M SQUARE; D1/D15/D29 AND D43 PRE AND POST OP
     Route: 042
     Dates: start: 20230607
  11. DOCETAXEL [Suspect]
     Active Substance: DOCETAXEL\DOCETAXEL ANHYDROUS
     Indication: Oesophageal adenocarcinoma
     Dosage: 50 MG/M SQUARE; D1/D15/D29 AND D43 PRE AN POST OP
     Route: 042
     Dates: start: 20230425
  12. DOCETAXEL [Suspect]
     Active Substance: DOCETAXEL\DOCETAXEL ANHYDROUS
     Dosage: 50 MG/M SQUARE; D1/D15/D29 AND D43 PRE AN POST OP
     Route: 042
     Dates: start: 20230607

REACTIONS (5)
  - Respiratory failure [Fatal]
  - Pneumonia [Fatal]
  - Weaning failure [Fatal]
  - Fibrinous bronchitis [Fatal]
  - Tracheal fistula [Fatal]

NARRATIVE: CASE EVENT DATE: 20231115
